FAERS Safety Report 8223935-0 (Version None)
Quarter: 2012Q1

REPORT INFORMATION
  Report Type: 
  Country: None (occurrence: None)
  Receive Date: 20120321
  Receipt Date: 20120314
  Transmission Date: 20120608
  Serious: Yes (Other)
  Sender: FDA-Public Use
  Company Number: US-PFIZER INC-2012068400

PATIENT
  Sex: Female

DRUGS (1)
  1. LYRICA [Suspect]
     Dosage: UNK

REACTIONS (16)
  - ASTHENIA [None]
  - NERVOUS SYSTEM DISORDER [None]
  - MUSCULOSKELETAL STIFFNESS [None]
  - SLEEP DISORDER [None]
  - DEPRESSION [None]
  - EPSTEIN-BARR VIRUS INFECTION [None]
  - PAIN [None]
  - COGNITIVE DISORDER [None]
  - FATIGUE [None]
  - INJURY [None]
  - MIGRAINE [None]
  - ARTHROPATHY [None]
  - FIBROMYALGIA [None]
  - ACTIVITIES OF DAILY LIVING IMPAIRED [None]
  - HYSTERECTOMY [None]
  - DYSGEUSIA [None]
